FAERS Safety Report 5337878-3 (Version None)
Quarter: 2007Q2

REPORT INFORMATION
  Report Type: 
  Country: None (occurrence: None)
  Receive Date: 20070327
  Receipt Date: 20070129
  Transmission Date: 20071010
  Serious: No
  Sender: FDA-Public Use
  Company Number: 235763

PATIENT
  Age: 49 Year
  Sex: Female

DRUGS (1)
  1. AVASTIN [Suspect]
     Indication: BREAST CANCER STAGE IV
     Dosage: SEE IMAGE
     Dates: start: 20070115

REACTIONS (1)
  - CATHETER RELATED COMPLICATION [None]
